FAERS Safety Report 6884631-5 (Version None)
Quarter: 2010Q3

REPORT INFORMATION
  Report Type: 
  Country: None (occurrence: None)
  Receive Date: 20100729
  Receipt Date: 20070717
  Transmission Date: 20110219
  Serious: Yes (Other)
  Sender: FDA-Public Use
  Company Number: US-PFIZER INC-2007058555

PATIENT
  Sex: Male
  Weight: 79.545 kg

DRUGS (2)
  1. CELEBREX [Suspect]
     Indication: TENDONITIS
     Dates: start: 20070604
  2. ACETYLSALICYLIC ACID SRT [Concomitant]

REACTIONS (1)
  - DEAFNESS [None]
